FAERS Safety Report 8580864-0 (Version None)
Quarter: 2012Q3

REPORT INFORMATION
  Report Type: 
  Country: None (occurrence: None)
  Receive Date: 20120809
  Receipt Date: 20120802
  Transmission Date: 20120928
  Serious: Yes (Other)
  Sender: FDA-Public Use
  Company Number: US-TEVA-351824USA

PATIENT
  Sex: Female
  Weight: 63.56 kg

DRUGS (2)
  1. PLAN B ONE-STEP [Suspect]
     Indication: POST COITAL CONTRACEPTION
     Dosage: 1.5 MILLIGRAM DAILY;
     Route: 048
     Dates: start: 20120717, end: 20120717
  2. XANAX [Concomitant]
     Indication: ANXIETY

REACTIONS (6)
  - TREMOR [None]
  - HYPERHIDROSIS [None]
  - MENSTRUATION IRREGULAR [None]
  - PANIC ATTACK [None]
  - ANXIETY [None]
  - LOSS OF CONSCIOUSNESS [None]
